FAERS Safety Report 5537999-6 (Version None)
Quarter: 2007Q4

REPORT INFORMATION
  Report Type: 
  Country: None (occurrence: None)
  Receive Date: 20071207
  Receipt Date: 20071127
  Transmission Date: 20080405
  Serious: Yes (Other)
  Sender: FDA-Public Use
  Company Number: US-PFIZER INC-2007101070

PATIENT
  Sex: Female
  Weight: 79.545 kg

DRUGS (3)
  1. CHANTIX [Suspect]
     Indication: SMOKING CESSATION THERAPY
     Route: 048
     Dates: start: 20071103, end: 20071122
  2. PERCOCET [Concomitant]
     Indication: INTERVERTEBRAL DISC PROTRUSION
     Route: 048
  3. VICOPROFEN [Concomitant]
     Indication: ENDOMETRIOSIS
     Route: 048

REACTIONS (6)
  - ANXIETY [None]
  - DEPRESSION [None]
  - FATIGUE [None]
  - MOTOR DYSFUNCTION [None]
  - PANIC ATTACK [None]
  - PARALYSIS [None]
